FAERS Safety Report 7643500-3 (Version None)
Quarter: 2011Q3

REPORT INFORMATION
  Report Type: 
  Country: None (occurrence: None)
  Receive Date: 20110729
  Receipt Date: 20110719
  Transmission Date: 20111222
  Serious: Yes (Other)
  Sender: FDA-Public Use
  Company Number: MA-JNJFOC-20110710148

PATIENT
  Age: 47 Year
  Sex: Female

DRUGS (4)
  1. PACLITAXEL [Suspect]
     Indication: NASOPHARYNGEAL CANCER
     Dosage: FOR 12 WEEKS; TOTAL OF 4 CYCLES
     Route: 065
  2. PACLITAXEL [Suspect]
     Indication: BREAST CANCER
     Dosage: FOR 12 WEEKS; TOTAL OF 4 CYCLES
     Route: 065
  3. DOXORUBICIN HYDROCHLORIDE [Suspect]
     Indication: NASOPHARYNGEAL CANCER
     Dosage: TOTAL OF 4 CYCLES
     Route: 042
  4. DOXORUBICIN HYDROCHLORIDE [Suspect]
     Indication: BREAST CANCER
     Dosage: TOTAL OF 4 CYCLES
     Route: 042

REACTIONS (4)
  - NEUROPATHY PERIPHERAL [None]
  - ALOPECIA TOTALIS [None]
  - MUCOSAL INFLAMMATION [None]
  - NEUTROPENIA [None]
